FAERS Safety Report 5049543-0 (Version None)
Quarter: 2006Q2

REPORT INFORMATION
  Report Type: 
  Country: None (occurrence: None)
  Receive Date: 20060613
  Receipt Date: 20060412
  Transmission Date: 20061013
  Serious: Yes (Hospitalization)
  Sender: FDA-Public Use
  Company Number: 2006-00307

PATIENT
  Age: 71 Year
  Sex: Male
  Weight: 84.4 kg

DRUGS (4)
  1. VELCADE [Suspect]
     Indication: MULTIPLE MYELOMA
     Dosage: 24.30 MG, IV BOLUS
     Route: 040
     Dates: start: 20051107, end: 20051222
  2. EZETIMIBE (EZETIMIBE) [Concomitant]
  3. LIPITOR [Concomitant]
  4. HYDROCODONE HYDROCODONE) [Concomitant]

REACTIONS (2)
  - ORTHOSTATIC HYPOTENSION [None]
  - PERFORMANCE STATUS DECREASED [None]
